FAERS Safety Report 10431720 (Version 2)
Quarter: 2014Q3

REPORT INFORMATION
  Report Type: Report from Study
  Country: US (occurrence: US)
  Receive Date: 20140904
  Receipt Date: 20140913
  Transmission Date: 20150326
  Serious: No
  Sender: FDA-Public Use
  Company Number: US-ELI_LILLY_AND_COMPANY-US201409000459

PATIENT
  Age: 72 Year
  Sex: Female

DRUGS (8)
  1. LEVEMIR [Concomitant]
     Active Substance: INSULIN DETEMIR
  2. LISINOPRIL. [Concomitant]
     Active Substance: LISINOPRIL
  3. TERIPARATIDE [Suspect]
     Active Substance: TERIPARATIDE
     Indication: OSTEOPOROSIS
     Dosage: UNK UNK, QD
     Route: 065
     Dates: start: 20140718
  4. DIGOXIN. [Concomitant]
     Active Substance: DIGOXIN
  5. LASIX [Concomitant]
     Active Substance: FUROSEMIDE
  6. ASPIRIN. [Concomitant]
     Active Substance: ASPIRIN
  7. POTASSIUM GLUCONATE [Concomitant]
     Active Substance: POTASSIUM GLUCONATE
  8. B12                                /00056202/ [Concomitant]

REACTIONS (12)
  - Injection site urticaria [Unknown]
  - Injection site erythema [Not Recovered/Not Resolved]
  - Muscular weakness [Unknown]
  - Pain in extremity [Unknown]
  - Pain [Unknown]
  - Fatigue [Unknown]
  - Arthralgia [Recovered/Resolved]
  - Chills [Unknown]
  - Myalgia [Recovered/Resolved]
  - Arthritis [Unknown]
  - Oropharyngeal pain [Recovered/Resolved]
  - Cough [Not Recovered/Not Resolved]

NARRATIVE: CASE EVENT DATE: 20140718
